FAERS Safety Report 8911446 (Version 1)
Quarter: 2012Q4

REPORT INFORMATION
  Report Type: 
  Country: US (occurrence: US)
  Receive Date: 20121116
  Receipt Date: 20121116
  Transmission Date: 20130627
  Serious: Yes (Hospitalization)
  Sender: FDA-Public Use
  Company Number: US-BAYER-2012-117788

PATIENT
  Age: 41 Year
  Sex: Female

DRUGS (18)
  1. YAZ [Suspect]
  2. YASMIN [Suspect]
     Indication: ENDOMETRIOSIS
  3. YASMIN [Suspect]
     Indication: CONTRACEPTION
  4. YASMIN [Suspect]
     Indication: PELVIC PAIN
  5. OCELLA [Suspect]
  6. LEXAPRO [Concomitant]
     Dosage: 10 mg, daily
     Route: 048
  7. ZOFRAN [Concomitant]
     Dosage: 4 mg, UNK
     Route: 048
     Dates: start: 20120308
  8. KETOROLAC [Concomitant]
     Dosage: 60 mg, UNK
     Route: 030
     Dates: start: 20120308
  9. DILAUDID [Concomitant]
  10. ULTRAM [Concomitant]
     Dosage: 50 mg, 1 6-8 hours
     Route: 048
     Dates: start: 20120308
  11. IBUPROFEN [Concomitant]
     Dosage: 600 mg, TID
     Route: 048
     Dates: start: 20120308
  12. TORADOL [Concomitant]
  13. LORAZEPAM [Concomitant]
     Dosage: 1 mg, Q4HR PRN
  14. NORCO [Concomitant]
  15. NASONEX [Concomitant]
     Dosage: 50 mcg/24hr, UNK
  16. LORTAB [Concomitant]
     Dosage: UNK; 6-8 [hours] prn
     Route: 048
     Dates: start: 20120308
  17. TRAMADOL [Concomitant]
     Dosage: 50 mg, UNK
  18. HYDROCODONE/ACETAMINOPHEN [Concomitant]
     Dosage: 5-500 mg;UNK

REACTIONS (1)
  - Pulmonary embolism [Recovered/Resolved]
